FAERS Safety Report 9351293 (Version 2)
Quarter: 2013Q3

REPORT INFORMATION
  Report Type: Spontaneous
  Country: US (occurrence: US)
  Receive Date: 20130617
  Receipt Date: 20130910
  Transmission Date: 20140515
  Serious: Yes (Other)
  Sender: FDA-Public Use
  Company Number: US-PFIZER INC-2013175593

PATIENT
  Age: 46 Year
  Sex: Female
  Weight: 89 kg

DRUGS (8)
  1. SOLU-MEDROL [Suspect]
     Dosage: 1 G, SINGLE (1 G IN 0.9% NACL 50ML IVBP)
     Route: 042
     Dates: start: 20121104, end: 20121104
  2. AMPYRA [Suspect]
     Indication: MULTIPLE SCLEROSIS
     Dosage: 10 MG, 2X/DAY
     Route: 048
  3. TYSABRI [Concomitant]
     Dosage: 15 ML, (INJECT 15 ML AS INSTRUCTED EVERY 4 WEEKS)
     Route: 042
  4. ZOLOFT [Concomitant]
     Dosage: 150 MG, 1X/DAY (100 MG TABLET, TAKE 1.5 TABS DAILY)
     Route: 048
  5. DETROL LA [Concomitant]
     Dosage: 4 MG, 1X/DAY
     Route: 048
  6. DESYREL [Concomitant]
     Dosage: 150 MG, 1X/DAY (50 MG TAB, TAKE 3 TABS AT BEDTIME)
  7. LIORESAL [Concomitant]
     Dosage: 10 MG, 2X/DAY
  8. K-DUR [Concomitant]
     Dosage: 20 MEQ, SINGLE
     Route: 048
     Dates: start: 20121104, end: 20121104

REACTIONS (4)
  - Multiple sclerosis relapse [Recovered/Resolved]
  - Hypertension [Recovered/Resolved]
  - Gait disturbance [Recovered/Resolved]
  - Paraesthesia [Unknown]
